FAERS Safety Report 5266819-2 (Version None)
Quarter: 2007Q1

REPORT INFORMATION
  Report Type: 
  Country: None (occurrence: None)
  Receive Date: 20070316
  Receipt Date: 20070307
  Transmission Date: 20070707
  Serious: Yes (Life-Threatening, Other)
  Sender: FDA-Public Use
  Company Number: US-JNJFOC-20070102456

PATIENT
  Sex: Female
  Weight: 63 kg

DRUGS (10)
  1. REMICADE [Suspect]
     Route: 042
  2. REMICADE [Suspect]
     Route: 042
  3. REMICADE [Suspect]
     Route: 042
  4. REMICADE [Suspect]
     Route: 042
  5. REMICADE [Suspect]
     Indication: CROHN'S DISEASE
     Route: 042
  6. AZATHIPRINE [Concomitant]
     Indication: CROHN'S DISEASE
     Route: 048
  7. MULTI-VITAMIN [Concomitant]
  8. CALCIUM [Concomitant]
  9. FISH OIL [Concomitant]
  10. IRON [Concomitant]

REACTIONS (1)
  - CHRONIC MYELOID LEUKAEMIA [None]
